FAERS Safety Report 8949693 (Version 1)
Quarter: 2012Q4

REPORT INFORMATION
  Report Type: 
  Country: JP (occurrence: JP)
  Receive Date: 20121206
  Receipt Date: 20121206
  Transmission Date: 20130627
  Serious: Yes (Hospitalization)
  Sender: FDA-Public Use
  Company Number: JP-ABBOTT-12P-087-1016994-00

PATIENT
  Age: 3 Year
  Sex: Male

DRUGS (1)
  1. HOKUNALIN TAPE [Suspect]
     Indication: COUGH
     Route: 062
     Dates: start: 20121116

REACTIONS (1)
  - Asthma [Recovering/Resolving]
